FAERS Safety Report 15736576 (Version 1)
Quarter: 2018Q4

REPORT INFORMATION
  Report Type: Spontaneous
  Country: US (occurrence: US)
  Receive Date: 20181218
  Receipt Date: 20181218
  Transmission Date: 20190205
  Serious: No
  Sender: FDA-Public Use
  Company Number: US-JNJFOC-20181207653

PATIENT
  Sex: Male
  Weight: 107.96 kg

DRUGS (2)
  1. MENS ROGAINE EXTRA STRENGTH UNSCENTED [Suspect]
     Active Substance: MINOXIDIL
     Route: 061
  2. MENS ROGAINE EXTRA STRENGTH UNSCENTED [Suspect]
     Active Substance: MINOXIDIL
     Indication: ALOPECIA
     Dosage: HALF CAP-FULL
     Route: 061
     Dates: end: 201707

REACTIONS (3)
  - Underdose [Unknown]
  - Alopecia [Recovered/Resolved]
  - Inappropriate schedule of product administration [Unknown]
